FAERS Safety Report 24091368 (Version 1)
Quarter: 2024Q3

REPORT INFORMATION
  Report Type: Spontaneous
  Country: GB (occurrence: GB)
  Receive Date: 20240715
  Receipt Date: 20240715
  Transmission Date: 20241016
  Serious: Yes (Other)
  Sender: EPIC PHARM
  Company Number: GB-EPICPHARMA-GB-2024EPCLIT00814

PATIENT
  Age: 3 Year
  Sex: Male

DRUGS (1)
  1. GENTAMICIN SULFATE [Suspect]
     Active Substance: GENTAMICIN SULFATE
     Indication: Antibiotic therapy
     Route: 065

REACTIONS (1)
  - Deafness neurosensory [Unknown]
